FAERS Safety Report 7465000-6 (Version None)
Quarter: 2011Q2

REPORT INFORMATION
  Report Type: 
  Country: None (occurrence: None)
  Receive Date: 20110509
  Receipt Date: 20110426
  Transmission Date: 20111010
  Serious: Yes (Hospitalization)
  Sender: FDA-Public Use
  Company Number: US-JNJFOC-20110411201

PATIENT
  Sex: Male
  Weight: 92.53 kg

DRUGS (12)
  1. FENTANYL [Suspect]
     Route: 062
  2. FENTANYL [Suspect]
     Indication: BACK PAIN
     Route: 062
  3. FENTANYL [Suspect]
     Route: 062
  4. FENTANYL [Suspect]
     Route: 062
  5. UNSPECIFIED ARTHRITIC MEDICATION [Concomitant]
     Indication: ARTHRITIS
     Route: 065
  6. FENTANYL [Suspect]
     Route: 062
  7. BLOOD PRESSURE MEDICATION NOS [Concomitant]
     Indication: BLOOD PRESSURE
     Route: 065
  8. FENTANYL [Suspect]
     Route: 062
  9. MUSCLE RELAXANTS (NOS) [Suspect]
     Indication: BACK PAIN
     Route: 048
  10. FENTANYL [Suspect]
     Route: 062
  11. LYRICA [Concomitant]
     Indication: MUSCLE SPASMS
     Route: 065
  12. FENTANYL [Suspect]
     Indication: MUSCLE SPASMS
     Route: 062

REACTIONS (9)
  - ERUCTATION [None]
  - DYSURIA [None]
  - THERAPEUTIC RESPONSE DECREASED [None]
  - DYSPNOEA [None]
  - MUSCLE SPASMS [None]
  - ABDOMINAL DISTENSION [None]
  - THYROID NEOPLASM [None]
  - OESOPHAGEAL PAIN [None]
  - DRUG DOSE OMISSION [None]
